FAERS Safety Report 9605276 (Version 1)
Quarter: 2013Q4

REPORT INFORMATION
  Report Type: Spontaneous
  Country: DE (occurrence: DE)
  Receive Date: 20131008
  Receipt Date: 20131008
  Transmission Date: 20140711
  Serious: Yes (Congenital Anomaly)
  Sender: FDA-Public Use
  Company Number: DE-GLAXOSMITHKLINE-D0081335A

PATIENT
  Sex: Male

DRUGS (5)
  1. LAMOTRIGINE [Suspect]
     Indication: EPILEPSY
     Dosage: 25MG PER DAY
     Route: 064
  2. CLONAZEPAM [Suspect]
     Indication: EPILEPSY
     Dosage: .5MG PER DAY
     Route: 064
  3. VITAMIN B12/FOLIC ACID [Concomitant]
     Indication: PROPHYLAXIS OF NEURAL TUBE DEFECT
     Route: 064
  4. IODINE [Concomitant]
     Indication: PROPHYLAXIS OF NEURAL TUBE DEFECT
     Route: 064
  5. PARACETAMOL [Concomitant]
     Indication: TOOTHACHE
     Route: 064

REACTIONS (3)
  - Cleft lip and palate [Unknown]
  - Patent ductus arteriosus [Unknown]
  - Atrial septal defect [Unknown]
